FAERS Safety Report 7499708-3 (Version None)
Quarter: 2011Q2

REPORT INFORMATION
  Report Type: 
  Country: None (occurrence: None)
  Receive Date: 20110524
  Receipt Date: 20110516
  Transmission Date: 20111010
  Serious: No
  Sender: FDA-Public Use
  Company Number: BR-ROCHE-724019

PATIENT
  Age: 16 Year
  Sex: Female

DRUGS (2)
  1. ISOTRETINOIN [Suspect]
     Dosage: DOSE DECREASED.
     Route: 065
  2. ISOTRETINOIN [Suspect]
     Route: 065
     Dates: start: 20090501

REACTIONS (2)
  - PREGNANCY [None]
  - NO ADVERSE EVENT [None]
